FAERS Safety Report 22637658 (Version 1)
Quarter: 2023Q2

REPORT INFORMATION
  Report Type: Spontaneous
  Country: None (occurrence: CN)
  Receive Date: 20230626
  Receipt Date: 20230626
  Transmission Date: 20230722
  Serious: Yes (Hospitalization)
  Sender: FDA-Public Use
  Company Number: CN-Jiangsu Hengrui Medicine Co., Ltd.-2143086

PATIENT
  Age: 77 Year
  Sex: Male
  Weight: 60 kg

DRUGS (1)
  1. OXALIPLATIN [Suspect]
     Active Substance: OXALIPLATIN
     Indication: Colon cancer
     Route: 041
     Dates: start: 20230606, end: 20230606

REACTIONS (1)
  - Eosinopenia [Unknown]

NARRATIVE: CASE EVENT DATE: 20230609
